FAERS Safety Report 7251543-7 (Version None)
Quarter: 2011Q1

REPORT INFORMATION
  Report Type: 
  Country: None (occurrence: None)
  Receive Date: 20110128
  Receipt Date: 20110114
  Transmission Date: 20110831
  Serious: Yes (Hospitalization, Other)
  Sender: FDA-Public Use
  Company Number: US-ELI_LILLY_AND_COMPANY-US201010007083

PATIENT
  Sex: Female

DRUGS (22)
  1. COREG [Concomitant]
     Dosage: 625 MG, 2/D
  2. NORVASC [Concomitant]
     Dosage: 5 MG, DAILY (1/D)
  3. XANAX [Concomitant]
     Indication: ANXIETY
     Dosage: UNK, UNKNOWN
  4. FOLIC ACID [Concomitant]
  5. GLYCOLAX [Concomitant]
  6. FORTEO [Suspect]
     Indication: OSTEOPOROSIS
     Dosage: 20 UG, DAILY (1/D)
     Dates: end: 20101001
  7. PLAVIX [Concomitant]
     Dosage: 75 MG, DAILY (1/D)
  8. CALCIUM WITH VITAMIN D [Concomitant]
     Dosage: 600 MG, 2/D
  9. AMLODIPINE [Concomitant]
  10. ZOCOR [Concomitant]
     Dosage: 20 MG, UNKNOWN
  11. TYLENOL (CAPLET) [Concomitant]
     Indication: PAIN
     Dosage: 650 MG, AS NEEDED
  12. GAVISCON CHEWABLE [Concomitant]
  13. ACETAMINOPHEN [Concomitant]
  14. LASIX [Concomitant]
     Dosage: 40 MG, 2/D
  15. NITROGLYCERIN [Concomitant]
     Dosage: 0.4 D/F, DAILY (1/D)
  16. SPIRONOLACTONE [Concomitant]
     Dosage: 25 MG HALF A TABLET, DAILY (1/D)
  17. FORTEO [Suspect]
     Dosage: 20 UG, DAILY (1/D)
  18. ASPIRIN [Concomitant]
     Dosage: 325 MG, DAILY (1/D)
  19. LEXAPRO [Concomitant]
     Dosage: 1 TABLET, UNKNOWN
  20. COLACE [Concomitant]
     Dosage: 200 MG, DAILY (1/D)
  21. CLONIDINE [Concomitant]
     Dosage: 0.1 MG, EACH EVENING
  22. CARVEDILOL [Concomitant]

REACTIONS (12)
  - ARTHRALGIA [None]
  - CHEST PAIN [None]
  - MEDICATION ERROR [None]
  - HIP FRACTURE [None]
  - WEIGHT BEARING DIFFICULTY [None]
  - ABDOMINAL DISCOMFORT [None]
  - FALL [None]
  - ARTHRITIS [None]
  - BACK PAIN [None]
  - BREAST PAIN [None]
  - DRUG DOSE OMISSION [None]
  - NAUSEA [None]
